FAERS Safety Report 9509210 (Version 1)
Quarter: 2013Q3

REPORT INFORMATION
  Report Type: Spontaneous
  Country: US (occurrence: US)
  Receive Date: 20130909
  Receipt Date: 20130909
  Transmission Date: 20140515
  Serious: No
  Sender: FDA-Public Use
  Company Number: US-BRISTOL-MYERS SQUIBB COMPANY-19014091

PATIENT
  Sex: Female

DRUGS (1)
  1. ABILIFY TABS 5 MG [Suspect]
     Dosage: 1DF:1 TAB.THEN 10MG/2 TABLETS DAILY AND BY THE 3RD WEEK, 15MG/3 TABLETS.

REACTIONS (1)
  - Memory impairment [Unknown]
